FAERS Safety Report 20929204 (Version 1)
Quarter: 2022Q2

REPORT INFORMATION
  Report Type: Spontaneous
  Country: CZ (occurrence: CZ)
  Receive Date: 20220608
  Receipt Date: 20220608
  Transmission Date: 20220721
  Serious: Yes (Other)
  Sender: FDA-Public Use
  Company Number: CZ-JUVISE-2022008600

PATIENT
  Age: 77 Year
  Sex: Female

DRUGS (1)
  1. ANASTROZOLE [Suspect]
     Active Substance: ANASTROZOLE
     Indication: Breast cancer
     Dosage: UNK
     Route: 048
     Dates: start: 202002, end: 202103

REACTIONS (6)
  - Ischaemic stroke [Recovered/Resolved]
  - Malaise [Unknown]
  - Back pain [Unknown]
  - Neoplasm progression [Unknown]
  - Tumour marker increased [Unknown]
  - Fatigue [Unknown]

NARRATIVE: CASE EVENT DATE: 20200101
